FAERS Safety Report 6196348-3 (Version None)
Quarter: 2009Q2

REPORT INFORMATION
  Report Type: 
  Country: None (occurrence: None)
  Receive Date: 20090518
  Receipt Date: 20090518
  Transmission Date: 20091009
  Serious: Yes (Hospitalization)
  Sender: FDA-Public Use
  Company Number: None

PATIENT
  Sex: Male
  Weight: 57.28 kg

DRUGS (1)
  1. PEG-L-ASPARAGINASE (K-H) [Suspect]
     Dosage: 4150 UNIT

REACTIONS (8)
  - BLOOD PRESSURE DECREASED [None]
  - DYSPHAGIA [None]
  - HEART RATE INCREASED [None]
  - INFUSION RELATED REACTION [None]
  - LIP SWELLING [None]
  - NAUSEA [None]
  - RASH ERYTHEMATOUS [None]
  - VOMITING [None]
